FAERS Safety Report 5065061-8 (Version None)
Quarter: 2006Q3

REPORT INFORMATION
  Report Type: 
  Country: None (occurrence: None)
  Receive Date: 20060726
  Receipt Date: 20060714
  Transmission Date: 20061208
  Serious: Yes (Hospitalization)
  Sender: FDA-Public Use
  Company Number: 2006-01841

PATIENT

DRUGS (1)
  1. VELCADE [Suspect]
     Indication: MULTIPLE MYELOMA
     Dosage: 2.40 MG/M2, INTRAVENOUS
     Route: 042
     Dates: start: 20060516, end: 20060707

REACTIONS (2)
  - SWELLING [None]
  - TENDERNESS [None]
